FAERS Safety Report 21956098 (Version 3)
Quarter: 2023Q1

REPORT INFORMATION
  Report Type: Other
  Country: US (occurrence: None)
  Receive Date: 20230206
  Receipt Date: 20230217
  Transmission Date: 20230418
  Serious: Yes (Death)
  Sender: FDA-Public Use
  Company Number: US-ROCHE-3278955

PATIENT
  Age: 83 Year
  Sex: Female

DRUGS (1)
  1. XELODA [Suspect]
     Active Substance: CAPECITABINE
     Indication: Gastric cancer
     Dosage: TAKE 2 TABLETS TWICE A DAY 14 DAYS ON, 7 DAYS OFF. TAKE WITH WATER AND WITHIN 30 MINUTES OF, TAKE 2
     Route: 048

REACTIONS (2)
  - Death [Fatal]
  - Off label use [Unknown]
